FAERS Safety Report 10997757 (Version 1)
Quarter: 2015Q2

REPORT INFORMATION
  Report Type: Spontaneous
  Country: US (occurrence: US)
  Receive Date: 20150408
  Receipt Date: 20150408
  Transmission Date: 20150821
  Serious: No
  Sender: FDA-Public Use
  Company Number: US-BANPHARM-20143089

PATIENT
  Age: 83 Year
  Weight: 68.04 kg

DRUGS (2)
  1. ALEVE GELCAPS [Suspect]
     Active Substance: NAPROXEN SODIUM
     Indication: ARTHRITIS
  2. ALEVE [Suspect]
     Active Substance: NAPROXEN SODIUM
     Indication: ARTHRITIS
     Dosage: 1 DF, QD,
     Route: 048

REACTIONS (2)
  - Urticaria [Recovered/Resolved]
  - Epigastric discomfort [Recovered/Resolved]
